FAERS Safety Report 18845764 (Version 1)
Quarter: 2021Q1

REPORT INFORMATION
  Report Type: Report from Study
  Country: US (occurrence: US)
  Receive Date: 20210203
  Receipt Date: 20210203
  Transmission Date: 20210419
  Serious: No
  Sender: FDA-Public Use
  Company Number: US-EXELIXIS-CABO-20030296

PATIENT
  Age: 46 Year
  Sex: Male

DRUGS (1)
  1. CABOMETYX [Suspect]
     Active Substance: CABOZANTINIB S-MALATE
     Indication: PRODUCT USED FOR UNKNOWN INDICATION
     Dosage: 60 MG, QD
     Route: 048
     Dates: start: 202005

REACTIONS (5)
  - Ageusia [Unknown]
  - Abdominal distension [Unknown]
  - Back pain [Unknown]
  - Infrequent bowel movements [Unknown]
  - Decreased appetite [Unknown]

NARRATIVE: CASE EVENT DATE: 202005
